FAERS Safety Report 18741340 (Version 1)
Quarter: 2021Q1

REPORT INFORMATION
  Report Type: Spontaneous
  Country: US (occurrence: US)
  Receive Date: 20210114
  Receipt Date: 20210114
  Transmission Date: 20210419
  Serious: No
  Sender: FDA-Public Use
  Company Number: US-B.I. PHARMACEUTICALS,INC./RIDGEFIELD-2021-BI-076285

PATIENT
  Sex: Male

DRUGS (2)
  1. TRIJARDY XR [Suspect]
     Active Substance: EMPAGLIFLOZIN\LINAGLIPTIN\METFORMIN HYDROCHLORIDE
     Dosage: 25 MG EMPAGLIFLOZIN/5 MG LINAGLIPTIN/2000 MG METFORMIN ER TABLET DAILY
  2. TRIJARDY XR [Suspect]
     Active Substance: EMPAGLIFLOZIN\LINAGLIPTIN\METFORMIN HYDROCHLORIDE
     Indication: TYPE 2 DIABETES MELLITUS
     Dosage: 12.5 MG EMPAGLIFLOZIN/2.5 MG LINAGLIPTIN/1000 MG METFORMIN ER TABLET DAILY

REACTIONS (1)
  - Chest pain [Recovered/Resolved]
